FAERS Safety Report 13492082 (Version 2)
Quarter: 2017Q2

REPORT INFORMATION
  Report Type: Spontaneous
  Country: IT (occurrence: IT)
  Receive Date: 20170427
  Receipt Date: 20170501
  Transmission Date: 20170830
  Serious: Yes (Other)
  Sender: FDA-Public Use
  Company Number: IT-SA-2017SA073815

PATIENT
  Age: 46 Year
  Sex: Male
  Weight: 70 kg

DRUGS (1)
  1. AUBAGIO [Suspect]
     Active Substance: TERIFLUNOMIDE
     Indication: MULTIPLE SCLEROSIS
     Route: 048
     Dates: start: 2015, end: 20170414

REACTIONS (6)
  - Purulence [Not Recovered/Not Resolved]
  - Anal fistula [Not Recovered/Not Resolved]
  - Anal abscess [Not Recovered/Not Resolved]
  - Skin fissures [Not Recovered/Not Resolved]
  - Swelling [Not Recovered/Not Resolved]
  - Multiple sclerosis relapse [Unknown]

NARRATIVE: CASE EVENT DATE: 201601
